FAERS Safety Report 19618588 (Version 2)
Quarter: 2022Q2

REPORT INFORMATION
  Report Type: Spontaneous
  Country: US (occurrence: None)
  Receive Date: 20210727
  Receipt Date: 20220621
  Transmission Date: 20220720
  Serious: No
  Sender: FDA-Public Use
  Company Number: US-ROCHE-2819661

PATIENT
  Age: 42 Year
  Sex: Male

DRUGS (20)
  1. XELODA [Suspect]
     Active Substance: CAPECITABINE
     Indication: Oesophageal carcinoma
     Dosage: TOTAL DAILY DOSE 1500 MG
     Route: 048
     Dates: start: 20200807
  2. LONSURF [Suspect]
     Active Substance: TIPIRACIL HYDROCHLORIDE\TRIFLURIDINE
     Indication: Oesophageal carcinoma
     Dosage: CYCLE 1
     Route: 048
     Dates: start: 202101
  3. LONSURF [Suspect]
     Active Substance: TIPIRACIL HYDROCHLORIDE\TRIFLURIDINE
     Dosage: ON 12/MAR/2021, LAST DOSE WAS ADMINISTERED PRIOR TO EVENTS
     Route: 048
     Dates: start: 20210308
  4. ATORVASTATIN [Concomitant]
     Active Substance: ATORVASTATIN
     Route: 048
  5. CELEBREX [Concomitant]
     Active Substance: CELECOXIB
     Route: 048
  6. CIMETIDINE [Concomitant]
     Active Substance: CIMETIDINE
     Route: 048
  7. CLARITIN [Concomitant]
     Active Substance: LORATADINE
     Route: 048
  8. CYTOMEL [Concomitant]
     Active Substance: LIOTHYRONINE SODIUM
     Dosage: TOTAL DOSE 45 MCG
     Route: 048
  9. CYTOMEL [Concomitant]
     Active Substance: LIOTHYRONINE SODIUM
     Dosage: TOTAL DOSE 30 MG
     Route: 048
  10. DIPYRIDAMOLE [Concomitant]
     Active Substance: DIPYRIDAMOLE
     Route: 048
  11. DOXYCYCLINE HYCLATE [Concomitant]
     Active Substance: DOXYCYCLINE HYCLATE
     Dosage: TOTAL DOSE 200 MG
     Route: 048
  12. ITRACONAZOLE [Concomitant]
     Active Substance: ITRACONAZOLE
     Dosage: 1 OR 2 CAPSULE (1 IN 0.5 DAY)
     Route: 048
  13. IVERMECTIN [Concomitant]
     Active Substance: IVERMECTIN
     Dosage: TOTAL DOSE 10 MG 5 MG (1 IN 0.5 DAY)
  14. NALTREXONE [Concomitant]
     Active Substance: NALTREXONE
  15. METFORMIN [Concomitant]
     Active Substance: METFORMIN HYDROCHLORIDE
     Dosage: TOTAL DOSE 2000 MG (500 MG 1 IN 0.25 DAY)
  16. METHIMAZOLE [Concomitant]
     Active Substance: METHIMAZOLE
     Dosage: 1 TABLET IN MORNING, 2 TABLET AT NOON, 1 TABLET IN EVENING
     Route: 048
  17. ONDANSETRON [Concomitant]
     Active Substance: ONDANSETRON
     Indication: Nausea
     Route: 048
  18. THYMALFASIN [Concomitant]
     Active Substance: THYMALFASIN
     Dosage: 1.6 MG
     Route: 058
  19. MEBENDAZOLE [Concomitant]
     Active Substance: MEBENDAZOLE
  20. CIALIS [Concomitant]
     Active Substance: TADALAFIL
     Route: 048

REACTIONS (4)
  - Off label use [Unknown]
  - White blood cell count decreased [Not Recovered/Not Resolved]
  - Haemoglobin decreased [Not Recovered/Not Resolved]
  - Abdominal pain [Recovered/Resolved]

NARRATIVE: CASE EVENT DATE: 20201201
